FAERS Safety Report 6204088-7 (Version None)
Quarter: 2009Q2

REPORT INFORMATION
  Report Type: 
  Country: None (occurrence: None)
  Receive Date: 20090527
  Receipt Date: 20090519
  Transmission Date: 20091009
  Serious: Yes (Hospitalization)
  Sender: FDA-Public Use
  Company Number: US-PFIZER INC-2006015791

PATIENT
  Sex: Male
  Weight: 69.4 kg

DRUGS (23)
  1. MARAVIROC [Suspect]
     Indication: HIV INFECTION
     Dosage: UNK
     Route: 048
     Dates: start: 20050608, end: 20051227
  2. KALETRA [Concomitant]
     Indication: HIV INFECTION
     Dosage: 4 TABLETS
     Route: 048
     Dates: start: 20050609
  3. EPIVIR [Concomitant]
     Indication: HIV INFECTION
     Dosage: 4 TABLETS
     Route: 048
     Dates: start: 20050609
  4. ZIAGEN [Concomitant]
     Indication: HIV INFECTION
     Dosage: 1 TABLET
     Route: 048
     Dates: start: 20050606
  5. VITAMIN B-12 [Concomitant]
     Dosage: 1000 MCG/ML
     Route: 030
     Dates: start: 20050523
  6. TESTOSTERONE [Concomitant]
     Route: 061
     Dates: start: 20050920
  7. LOMOTIL [Concomitant]
     Indication: DIARRHOEA
     Dosage: 2.5-0.025 MG
     Route: 048
     Dates: start: 20030115
  8. BOOST [Concomitant]
     Route: 048
     Dates: start: 20030921
  9. MEGACE [Concomitant]
     Dosage: 40 MG/ML
     Route: 048
     Dates: start: 20050523
  10. ATIVAN [Concomitant]
     Route: 048
     Dates: start: 20040127
  11. HYDROCORTISONE [Concomitant]
     Indication: DRY SKIN
     Route: 061
     Dates: start: 20050523
  12. VITAMIN B COMPLEX CAP [Concomitant]
     Route: 048
     Dates: start: 20050523
  13. LEVOCARNITINE [Concomitant]
     Route: 048
     Dates: start: 20050523
  14. NIACIN [Concomitant]
     Route: 048
     Dates: start: 20050523
  15. DIFLUCAN [Concomitant]
     Route: 048
     Dates: start: 20050823
  16. NIZORAL [Concomitant]
     Indication: DRY SKIN
     Route: 061
     Dates: start: 20050705
  17. TRIAMCINOLONE ACETONIDE [Concomitant]
     Indication: DRY SKIN
     Route: 061
     Dates: start: 20050705
  18. NIZORAL [Concomitant]
     Route: 061
     Dates: start: 20050705
  19. MARINOL [Concomitant]
     Route: 048
     Dates: start: 20050705
  20. ZOVIRAX [Concomitant]
     Route: 048
     Dates: start: 20050715
  21. AMBIEN [Concomitant]
     Indication: INSOMNIA
     Route: 048
     Dates: start: 20051124
  22. PREVACID [Concomitant]
     Route: 048
     Dates: start: 20051205
  23. BACTRIM DS [Concomitant]
     Dosage: 800-160MG
     Route: 048
     Dates: start: 20050920

REACTIONS (2)
  - HEPATITIS [None]
  - PANCREATITIS [None]
